FAERS Safety Report 17810347 (Version 1)
Quarter: 2020Q2

REPORT INFORMATION
  Report Type: Spontaneous
  Country: US (occurrence: US)
  Receive Date: 20200521
  Receipt Date: 20200521
  Transmission Date: 20200714
  Serious: Yes (Other)
  Sender: FDA-Public Use
  Company Number: US-CIPLA LTD.-2020US03181

PATIENT

DRUGS (1)
  1. LAMOTRIGINE. [Suspect]
     Active Substance: LAMOTRIGINE
     Indication: LAFORA^S MYOCLONIC EPILEPSY
     Dosage: UNK
     Route: 065

REACTIONS (4)
  - Condition aggravated [Recovering/Resolving]
  - Off label use [Unknown]
  - Lafora^s myoclonic epilepsy [Recovering/Resolving]
  - Drug ineffective for unapproved indication [Unknown]
